FAERS Safety Report 5551227-7 (Version None)
Quarter: 2007Q4

REPORT INFORMATION
  Report Type: 
  Country: None (occurrence: None)
  Receive Date: 20071210
  Receipt Date: 20071126
  Transmission Date: 20080405
  Serious: Yes (Hospitalization)
  Sender: FDA-Public Use
  Company Number: 2007JP004095

PATIENT
  Age: 66 Year
  Sex: Female
  Weight: 58 kg

DRUGS (7)
  1. PROGRAF [Suspect]
     Indication: INTERSTITIAL LUNG DISEASE
     Dosage: 3 MG, ORAL
     Route: 048
     Dates: start: 20060801, end: 20070713
  2. ZANTAC [Suspect]
     Dates: end: 20070713
  3. PREDNISOLONE [Concomitant]
  4. BAKTAR                (SULFAMETHOXAZOLE, TRIMETHOPRIM) [Concomitant]
  5. BONALON                   (ALENDRONIC ACID) [Concomitant]
  6. PANALDINE                  (TICLOPIDINE HYDROCHLORIDE) [Concomitant]
  7. CRESTOR [Concomitant]

REACTIONS (2)
  - APLASTIC ANAEMIA [None]
  - BONE MARROW FAILURE [None]
